APPROVED DRUG PRODUCT: WERA
Active Ingredient: ETHINYL ESTRADIOL; NORETHINDRONE
Strength: 0.035MG;0.5MG
Dosage Form/Route: TABLET;ORAL-28
Application: A091204 | Product #001 | TE Code: AB
Applicant: NOVAST LABORATORIES LTD
Approved: Mar 27, 2012 | RLD: No | RS: Yes | Type: RX